FAERS Safety Report 7177929-7 (Version None)
Quarter: 2010Q4

REPORT INFORMATION
  Report Type: 
  Country: None (occurrence: None)
  Receive Date: 20101220
  Receipt Date: 20101211
  Transmission Date: 20110411
  Serious: No
  Sender: FDA-Public Use
  Company Number: US-ASTRAZENECA-2010SE58917

PATIENT
  Age: 13 Year
  Sex: Male

DRUGS (1)
  1. SEROQUEL [Suspect]
     Indication: SLEEP DISORDER
     Route: 048
     Dates: start: 20100804

REACTIONS (3)
  - BLOOD GLUCOSE FLUCTUATION [None]
  - MENTAL IMPAIRMENT [None]
  - NEUTROPENIA [None]
